FAERS Safety Report 6010761-6 (Version None)
Quarter: 2008Q4

REPORT INFORMATION
  Report Type: 
  Country: None (occurrence: None)
  Receive Date: 20081216
  Receipt Date: 20081202
  Transmission Date: 20090506
  Serious: Yes (Death, Congenital Anomaly)
  Sender: FDA-Public Use
  Company Number: 2008AP000123

PATIENT
  Sex: Male

DRUGS (1)
  1. PAROXETINE HYDROCHLORIDE [Suspect]
     Dosage: 20 MG;QD; TRPL
     Route: 064
     Dates: start: 19950101

REACTIONS (13)
  - ABORTION INDUCED [None]
  - AORTIC DILATATION [None]
  - ATRIAL SEPTAL DEFECT [None]
  - CEREBRAL VENTRICLE DILATATION [None]
  - CYTOGENETIC ABNORMALITY [None]
  - FOOT DEFORMITY [None]
  - HYPOSPADIAS [None]
  - MATERNAL DRUGS AFFECTING FOETUS [None]
  - MICROGNATHIA [None]
  - MULTIPLE CONGENITAL ABNORMALITIES [None]
  - PATENT DUCTUS ARTERIOSUS [None]
  - PULMONARY VALVE STENOSIS [None]
  - VENTRICULAR SEPTAL DEFECT [None]
